FAERS Safety Report 21765515 (Version 1)
Quarter: 2022Q4

REPORT INFORMATION
  Report Type: Spontaneous
  Country: FR (occurrence: FR)
  Receive Date: 20221222
  Receipt Date: 20221222
  Transmission Date: 20230113
  Serious: Yes (Hospitalization, Other)
  Sender: FDA-Public Use
  Company Number: FR-AFSSAPS-GR20222572

PATIENT
  Age: 50 Year
  Sex: Male

DRUGS (2)
  1. ACETAMINOPHEN [Suspect]
     Active Substance: ACETAMINOPHEN
     Indication: Intentional overdose
     Dosage: 20 DOSAGE FORM
     Route: 048
     Dates: start: 20221107, end: 20221107
  2. TRAMADOL [Suspect]
     Active Substance: TRAMADOL
     Indication: Intentional overdose
     Dosage: 20 DOSAGE FORM
     Route: 048
     Dates: start: 20221107, end: 20221107

REACTIONS (3)
  - Poisoning deliberate [Recovered/Resolved]
  - Metabolic acidosis [Recovered/Resolved]
  - Somnolence [Recovered/Resolved]

NARRATIVE: CASE EVENT DATE: 20221107
